FAERS Safety Report 4718520-9 (Version None)
Quarter: 2005Q3

REPORT INFORMATION
  Report Type: 
  Country: None (occurrence: None)
  Receive Date: 20050720
  Receipt Date: 20050711
  Transmission Date: 20060218
  Serious: Yes (Other)
  Sender: FDA-Public Use
  Company Number: PHBS2005BR10104

PATIENT
  Age: 67 Year
  Sex: Male
  Weight: 64 kg

DRUGS (5)
  1. FORASEQ [Suspect]
     Indication: OBSTRUCTIVE AIRWAYS DISORDER
     Dosage: 12/200 MCG/TID
     Dates: end: 20050709
  2. LASIX [Concomitant]
  3. CAPOTEN [Concomitant]
  4. BAMIFIX [Concomitant]
  5. ALDACTONE [Concomitant]

REACTIONS (4)
  - ASTHENIA [None]
  - DENGUE FEVER [None]
  - DYSPNOEA [None]
  - FATIGUE [None]
